FAERS Safety Report 6096465-2 (Version None)
Quarter: 2009Q1

REPORT INFORMATION
  Report Type: 
  Country: None (occurrence: None)
  Receive Date: 20090227
  Receipt Date: 20090127
  Transmission Date: 20090719
  Serious: No
  Sender: FDA-Public Use
  Company Number: US-BAYER-200912135NA

PATIENT
  Sex: Female

DRUGS (1)
  1. AVELOX [Suspect]
     Indication: PHARYNGITIS

REACTIONS (4)
  - DIARRHOEA [None]
  - FORMICATION [None]
  - MUSCULOSKELETAL PAIN [None]
  - VOMITING [None]
